FAERS Safety Report 19788734 (Version 1)
Quarter: 2021Q3

REPORT INFORMATION
  Report Type: Spontaneous
  Country: FR (occurrence: FR)
  Receive Date: 20210904
  Receipt Date: 20210904
  Transmission Date: 20211014
  Serious: Yes (Other)
  Sender: FDA-Public Use
  Company Number: FR-ROCHE-2903646

PATIENT
  Sex: Female

DRUGS (1)
  1. BEVACIZUMAB. [Suspect]
     Active Substance: BEVACIZUMAB
     Indication: NON-SMALL CELL LUNG CANCER
     Dosage: PRODUCT DISCONTINUED DUE TO THE ADVERSE EVENT
     Route: 065

REACTIONS (3)
  - Metastases to liver [Unknown]
  - Metastases to bone [Unknown]
  - Metastases to lung [Unknown]
